FAERS Safety Report 23284388 (Version 1)
Quarter: 2023Q4

REPORT INFORMATION
  Report Type: Spontaneous
  Country: US (occurrence: None)
  Receive Date: 20231211
  Receipt Date: 20231211
  Transmission Date: 20240110
  Serious: No
  Sender: FDA-Public Use
  Company Number: None

PATIENT
  Age: 59 Year
  Sex: Female
  Weight: 97.52 kg

DRUGS (2)
  1. TALTZ [Suspect]
     Active Substance: IXEKIZUMAB
     Indication: Psoriasis
     Dosage: OTHER FREQUENCY : WEEK 0 ;?INJECT 160 MG (2 SYRINGES) SUBCUTANEOUSLY AT WEEK 0, THEN 80 MG (1 SYRING
     Route: 058
     Dates: start: 202211
  2. TALTZ [Suspect]
     Active Substance: IXEKIZUMAB
     Dosage: OTHER FREQUENCY : WEEK 2;?
     Route: 058
     Dates: start: 202211

REACTIONS (3)
  - Bronchitis [None]
  - Sinusitis [None]
  - Chronic obstructive pulmonary disease [None]
